FAERS Safety Report 14735181 (Version 1)
Quarter: 2018Q2

REPORT INFORMATION
  Report Type: Spontaneous
  Country: US (occurrence: US)
  Receive Date: 20180403
  Receipt Date: 20180403
  Transmission Date: 20180711
  Serious: Yes (Death)
  Sender: FDA-Public Use
  Company Number: None

PATIENT
  Age: 46 Year
  Sex: Female

DRUGS (1)
  1. BOTOX [Suspect]
     Active Substance: ONABOTULINUMTOXINA
     Indication: MIGRAINE
     Dosage: ?          OTHER FREQUENCY:Q 12 WEEKS;?
     Route: 030
     Dates: start: 20170718, end: 20180402

REACTIONS (1)
  - Death [None]

NARRATIVE: CASE EVENT DATE: 20180402
